FAERS Safety Report 15181005 (Version 2)
Quarter: 2018Q3

REPORT INFORMATION
  Report Type: Report from Study
  Country: US (occurrence: US)
  Receive Date: 20180723
  Receipt Date: 20180726
  Transmission Date: 20181010
  Serious: No
  Sender: FDA-Public Use
  Company Number: US-SHIRE-US201825194

PATIENT
  Age: 72 Year
  Sex: Female

DRUGS (2)
  1. XIIDRA [Suspect]
     Active Substance: LIFITEGRAST
     Dosage: UNK, 2X/DAY:BID
     Route: 047
     Dates: start: 20180709
  2. XIIDRA [Suspect]
     Active Substance: LIFITEGRAST
     Indication: PRODUCT USED FOR UNKNOWN INDICATION
     Dosage: UNK, 2X/DAY:BID
     Route: 047
     Dates: start: 20180707

REACTIONS (5)
  - Vision blurred [Unknown]
  - Instillation site reaction [Unknown]
  - Eye pruritus [Unknown]
  - Dysgeusia [Unknown]
  - Instillation site pain [Unknown]

NARRATIVE: CASE EVENT DATE: 20180709
